FAERS Safety Report 25654619 (Version 2)
Quarter: 2025Q3

REPORT INFORMATION
  Report Type: Spontaneous
  Country: IR (occurrence: IR)
  Receive Date: 20250807
  Receipt Date: 20250901
  Transmission Date: 20251020
  Serious: Yes (Life-Threatening)
  Sender: BAUSCH AND LOMB
  Company Number: IR-MLMSERVICE-20250729-PI590383-00117-1

PATIENT
  Age: 45 Year
  Sex: Female

DRUGS (6)
  1. DEXAMETHASONE [Suspect]
     Active Substance: DEXAMETHASONE
     Indication: Rheumatoid arthritis
     Route: 048
  2. DEXAMETHASONE [Suspect]
     Active Substance: DEXAMETHASONE
     Indication: Haemangioma
  3. DEXAMETHASONE [Suspect]
     Active Substance: DEXAMETHASONE
     Indication: Immunosuppressant drug therapy
  4. DEPO-MEDROL [Suspect]
     Active Substance: METHYLPREDNISOLONE ACETATE
     Indication: Rheumatoid arthritis
     Route: 030
  5. DEPO-MEDROL [Suspect]
     Active Substance: METHYLPREDNISOLONE ACETATE
     Indication: Haemangioma
  6. DEPO-MEDROL [Suspect]
     Active Substance: METHYLPREDNISOLONE ACETATE
     Indication: Immunosuppressant drug therapy

REACTIONS (1)
  - Disseminated strongyloidiasis [Recovered/Resolved]
